FAERS Safety Report 4619045-1 (Version None)
Quarter: 2005Q1

REPORT INFORMATION
  Report Type: 
  Country: None (occurrence: None)
  Receive Date: 20050317
  Receipt Date: 20050317
  Transmission Date: 20050727
  Serious: Yes (Other)
  Sender: FDA-Public Use
  Company Number: None

PATIENT
  Age: 76 Year
  Sex: Male

DRUGS (7)
  1. ENALAPRIL 40MG   PO   QD [Suspect]
     Indication: HYPERTENSION
     Dates: start: 20030402, end: 20041220
  2. ASPIRIN [Concomitant]
  3. DOXAZOSIN MESYLATE [Concomitant]
  4. ENALAPRIL MALEATE [Concomitant]
  5. HYDROCHLOROTHIAZIDE [Concomitant]
  6. RANITIDINE HCL [Concomitant]
  7. SILDENAFIL CITRATE [Concomitant]

REACTIONS (2)
  - EYE SWELLING [None]
  - SWELLING FACE [None]
